FAERS Safety Report 5756984-2 (Version None)
Quarter: 2008Q2

REPORT INFORMATION
  Report Type: 
  Country: None (occurrence: None)
  Receive Date: 20080603
  Receipt Date: 20080523
  Transmission Date: 20081010
  Serious: Yes (Death, Life-Threatening, Other)
  Sender: FDA-Public Use
  Company Number: CA-ELI_LILLY_AND_COMPANY-CA200804000870

PATIENT
  Sex: Female
  Weight: 102 kg

DRUGS (16)
  1. XIGRIS [Suspect]
     Indication: SEPTIC SHOCK
     Dosage: 24 D/F, OTHER
     Route: 042
     Dates: start: 20080331, end: 20080402
  2. XIGRIS [Suspect]
     Dosage: 24 D/F, OTHER
     Route: 042
     Dates: start: 20080403, end: 20080405
  3. LEVOPHED [Concomitant]
     Indication: BLOOD PRESSURE DECREASED
     Dosage: UNK, UNK
     Dates: end: 20080404
  4. LEVOPHED [Concomitant]
     Dates: start: 20080406
  5. VASOPRESSIN [Concomitant]
     Indication: BLOOD PRESSURE DECREASED
     Dates: start: 20080331, end: 20080408
  6. PROPOFOL [Concomitant]
     Indication: ENDOTRACHEAL INTUBATION
     Dates: start: 20080331
  7. FENTANYL-100 [Concomitant]
     Indication: ENDOTRACHEAL INTUBATION
     Dates: start: 20080331
  8. HEPARIN [Concomitant]
     Dosage: UNK, 2/D
     Route: 058
     Dates: end: 20080408
  9. HEPARIN [Concomitant]
     Route: 042
     Dates: start: 20080412, end: 20080414
  10. TAZOCIN [Concomitant]
     Dates: start: 20080330, end: 20080414
  11. GENTAMICIN [Concomitant]
     Dates: start: 20080330, end: 20080404
  12. VANCOMYCIN HCL [Concomitant]
     Dosage: UNK, UNK
     Dates: start: 20080331, end: 20080331
  13. CLOXA [Concomitant]
     Dosage: 2 G, UNK
     Dates: start: 20080401, end: 20080414
  14. FLAGYL [Concomitant]
     Dates: start: 20080401, end: 20080414
  15. DIFLUCAN [Concomitant]
     Dates: start: 20080406, end: 20080414
  16. AMIODARONE HCL [Concomitant]
     Dates: start: 20080401, end: 20080404

REACTIONS (10)
  - CARDIAC FIBRILLATION [None]
  - DISSEMINATED INTRAVASCULAR COAGULATION [None]
  - HAEMOGLOBIN DECREASED [None]
  - INTERNATIONAL NORMALISED RATIO INCREASED [None]
  - NEUTROPENIA [None]
  - PNEUMONIA STAPHYLOCOCCAL [None]
  - RENAL FAILURE [None]
  - SEPTIC SHOCK [None]
  - THROMBOCYTOPENIA [None]
  - URINARY TRACT INFECTION ENTEROCOCCAL [None]
